FAERS Safety Report 6137913-9 (Version None)
Quarter: 2009Q1

REPORT INFORMATION
  Report Type: 
  Country: None (occurrence: None)
  Receive Date: 20090327
  Receipt Date: 20090327
  Transmission Date: 20090719
  Serious: Yes (Death, Life-Threatening)
  Sender: FDA-Public Use
  Company Number: None

PATIENT
  Age: 93 Year
  Sex: Female

DRUGS (1)
  1. FLUCONAZOLE [Suspect]
     Indication: ORAL CANDIDIASIS
     Dosage: 200MG QD PO
     Route: 048
     Dates: start: 20090213

REACTIONS (5)
  - ERYTHEMA [None]
  - LIP SWELLING [None]
  - PHARYNGEAL OEDEMA [None]
  - TONGUE OEDEMA [None]
  - URTICARIA [None]
